FAERS Safety Report 8463145-5 (Version None)
Quarter: 2012Q2

REPORT INFORMATION
  Report Type: 
  Country: None (occurrence: None)
  Receive Date: 20120323
  Receipt Date: 20110922
  Transmission Date: 20120825
  Serious: Yes (Other)
  Sender: FDA-Public Use
  Company Number: 163-21880-11092903

PATIENT
  Age: 63 Year
  Sex: Female

DRUGS (6)
  1. AMLODIPINE BESYLATE [Concomitant]
  2. LEVOTHYROXINE SODIUM [Concomitant]
  3. GLIMEPIRIDE [Concomitant]
  4. LENALIDOMIDE [Suspect]
     Indication: MULTIPLE MYELOMA
     Dosage: 10 MG, /21 CAPS, PO
     Route: 048
     Dates: start: 20110505
  5. VITAMIN D [Concomitant]
  6. CRESTOR [Concomitant]

REACTIONS (1)
  - RASH GENERALISED [None]
